FAERS Safety Report 6450464-7 (Version None)
Quarter: 2009Q4

REPORT INFORMATION
  Report Type: 
  Country: None (occurrence: None)
  Receive Date: 20091123
  Receipt Date: 20090925
  Transmission Date: 20100525
  Serious: No
  Sender: FDA-Public Use
  Company Number: US-BAYER-200917944NA

PATIENT
  Age: 86 Year
  Sex: Female

DRUGS (3)
  1. ULTRAVIST 300 [Suspect]
     Indication: COMPUTERISED TOMOGRAM
     Dosage: POWER INJECTOR AND WARMER, 1.5ML/SEC INTO UNSPECIFIED SITE
     Route: 042
     Dates: start: 20090212, end: 20090212
  2. PREDNISONE [Concomitant]
     Indication: PREMEDICATION
     Dosage: AS USED: 5 MG
  3. BENADRYL [Concomitant]
     Dates: start: 20090212, end: 20090212

REACTIONS (2)
  - PERIORBITAL OEDEMA [None]
  - THROAT TIGHTNESS [None]
